FAERS Safety Report 12314463 (Version 3)
Quarter: 2016Q2

REPORT INFORMATION
  Report Type: Spontaneous
  Country: US (occurrence: US)
  Receive Date: 20160428
  Receipt Date: 20160505
  Transmission Date: 20160815
  Serious: Yes (Hospitalization, Other)
  Sender: FDA-Public Use
  Company Number: US-JNJFOC-20160415955

PATIENT
  Sex: Female

DRUGS (2)
  1. XARELTO [Suspect]
     Active Substance: RIVAROXABAN
     Indication: ATRIAL FIBRILLATION
     Route: 048
     Dates: start: 2016, end: 20160413
  2. XARELTO [Suspect]
     Active Substance: RIVAROXABAN
     Indication: CEREBROVASCULAR ACCIDENT PROPHYLAXIS
     Route: 048
     Dates: start: 2016, end: 20160413

REACTIONS (11)
  - Haemoptysis [Not Recovered/Not Resolved]
  - Headache [Unknown]
  - Mouth haemorrhage [Unknown]
  - Eye pain [Unknown]
  - Abasia [Unknown]
  - Hypoaesthesia [Unknown]
  - Weight decreased [Not Recovered/Not Resolved]
  - Rectal haemorrhage [Unknown]
  - Amnesia [Unknown]
  - Asthenia [Not Recovered/Not Resolved]
  - Dysuria [Not Recovered/Not Resolved]

NARRATIVE: CASE EVENT DATE: 2016
